FAERS Safety Report 16128032 (Version 1)
Quarter: 2019Q1

REPORT INFORMATION
  Report Type: Spontaneous
  Country: US (occurrence: US)
  Receive Date: 20190328
  Receipt Date: 20190328
  Transmission Date: 20190418
  Serious: No
  Sender: FDA-Public Use
  Company Number: US-PFIZER INC-2019122217

PATIENT
  Age: 71 Year
  Sex: Female
  Weight: 57.6 kg

DRUGS (2)
  1. NIFEDIPINE. [Suspect]
     Active Substance: NIFEDIPINE
     Indication: RAYNAUD^S PHENOMENON
     Dosage: 30 MG, EVERY DAY IN THE MORNING
     Route: 048
     Dates: start: 201901
  2. NIFEDIPINE. [Suspect]
     Active Substance: NIFEDIPINE
     Indication: RAYNAUD^S PHENOMENON
     Dosage: 30 MG, EVERY DAY IN THE MORNING
     Route: 048
     Dates: start: 201901

REACTIONS (3)
  - Drug effective for unapproved indication [Unknown]
  - Epistaxis [Not Recovered/Not Resolved]
  - Peripheral coldness [Unknown]

NARRATIVE: CASE EVENT DATE: 201901
